FAERS Safety Report 7801707-6 (Version None)
Quarter: 2011Q4

REPORT INFORMATION
  Report Type: 
  Country: None (occurrence: None)
  Receive Date: 20111007
  Receipt Date: 20110923
  Transmission Date: 20120403
  Serious: Yes (Hospitalization, Other)
  Sender: FDA-Public Use
  Company Number: DE-MYLANLABS-2011S1019845

PATIENT
  Age: 0 Year
  Sex: Female
  Weight: 4.3 kg

DRUGS (1)
  1. PAROXETINE HCL [Suspect]
     Dosage: 20 [MG/D ]
     Route: 064

REACTIONS (4)
  - NEONATAL RESPIRATORY FAILURE [None]
  - MATERNAL EXPOSURE DURING PREGNANCY [None]
  - CONVULSION NEONATAL [None]
  - LARGE FOR DATES BABY [None]
